FAERS Safety Report 5713313-8 (Version None)
Quarter: 2008Q2

REPORT INFORMATION
  Report Type: 
  Country: None (occurrence: None)
  Receive Date: 20080418
  Receipt Date: 20080401
  Transmission Date: 20081010
  Serious: Yes (Hospitalization)
  Sender: FDA-Public Use
  Company Number: 36812

PATIENT
  Age: 73 Year
  Sex: Female

DRUGS (1)
  1. NEURONTIN [Suspect]
     Indication: ANALGESIC THERAPY
     Dosage: TOPICAL
     Route: 061
     Dates: start: 20080312

REACTIONS (6)
  - BURNS SECOND DEGREE [None]
  - INTENTIONAL DRUG MISUSE [None]
  - PULMONARY EMBOLISM [None]
  - THERMAL BURNS OF EYE [None]
  - VISUAL DISTURBANCE [None]
  - WRONG TECHNIQUE IN DRUG USAGE PROCESS [None]
